FAERS Safety Report 18041515 (Version 2)
Quarter: 2020Q4

REPORT INFORMATION
  Report Type: Spontaneous
  Country: US (occurrence: US)
  Receive Date: 20200720
  Receipt Date: 20201103
  Transmission Date: 20210113
  Serious: No
  Sender: FDA-Public Use
  Company Number: US-AMAG PHARMACEUTICALS, INC.-AMAG202002310

PATIENT
  Age: 33 Year
  Sex: Female

DRUGS (3)
  1. FERROUS SULFATE. [Concomitant]
     Active Substance: FERROUS SULFATE
     Indication: ANAEMIA
     Dates: start: 20200830
  2. MAKENA [Suspect]
     Active Substance: HYDROXYPROGESTERONE CAPROATE
     Indication: PREMATURE DELIVERY
     Dosage: 250MG/ML, WEEKLY
     Route: 058
     Dates: start: 20200619
  3. CLARITIN [Concomitant]
     Active Substance: LORATADINE
     Indication: PRODUCT USED FOR UNKNOWN INDICATION

REACTIONS (4)
  - Pain in extremity [Not Recovered/Not Resolved]
  - Pruritus [Recovered/Resolved]
  - Erythema [Recovered/Resolved]
  - Peripheral swelling [Not Recovered/Not Resolved]

NARRATIVE: CASE EVENT DATE: 20200619
